FAERS Safety Report 5707972-3 (Version None)
Quarter: 2008Q2

REPORT INFORMATION
  Report Type: 
  Country: None (occurrence: None)
  Receive Date: 20080417
  Receipt Date: 20080410
  Transmission Date: 20081010
  Serious: Yes (Life-Threatening, Other)
  Sender: FDA-Public Use
  Company Number: PHBS2006JP20189

PATIENT
  Age: 78 Year
  Sex: Female
  Weight: 49 kg

DRUGS (10)
  1. NEORAL [Suspect]
     Indication: MYASTHENIA GRAVIS
     Dosage: 150 MG/D
     Route: 048
     Dates: start: 20061221, end: 20061227
  2. EUGLUCON [Concomitant]
     Indication: DIABETES MELLITUS
     Dosage: 2.5 MG/DAY
     Route: 048
  3. MELBIN [Concomitant]
     Indication: DIABETES MELLITUS
     Dosage: 750 MG/DAY
     Route: 048
  4. BASEN [Concomitant]
     Indication: DIABETES MELLITUS
     Dosage: 0.6 MG/DAY
     Route: 048
  5. MESTINON [Concomitant]
     Indication: MYASTHENIA GRAVIS
     Dosage: 120 MG/DAY
     Route: 048
  6. KINEDAK [Concomitant]
     Indication: DIABETES MELLITUS
     Dosage: 150 MG/DAY
     Route: 048
  7. NU-LOTAN [Concomitant]
     Indication: HYPERTENSION
     Dosage: 100 MG/DAY
     Route: 048
  8. CONIEL [Concomitant]
     Indication: HYPERTENSION
     Dosage: 8 MG/DAY
     Route: 048
  9. CARDENALIN [Concomitant]
     Indication: HYPERTENSION
     Dosage: 4 MG/DAY
     Route: 048
  10. FLUITRAN [Concomitant]
     Indication: HYPERTENSION
     Dosage: 2 MG/DAY
     Route: 048

REACTIONS (9)
  - BLOOD CREATININE ABNORMAL [None]
  - BLOOD POTASSIUM INCREASED [None]
  - BLOOD UREA INCREASED [None]
  - DYSARTHRIA [None]
  - HYPOGLYCAEMIA [None]
  - HYPONATRAEMIA [None]
  - RENAL DISORDER [None]
  - RENAL IMPAIRMENT [None]
  - VOMITING [None]
